FAERS Safety Report 5750736-5 (Version None)
Quarter: 2008Q2

REPORT INFORMATION
  Report Type: 
  Country: None (occurrence: None)
  Receive Date: 20080523
  Receipt Date: 20080523
  Transmission Date: 20081010
  Serious: Yes (Hospitalization)
  Sender: FDA-Public Use
  Company Number: None

PATIENT
  Age: 91 Year
  Sex: Female
  Weight: 86 kg

DRUGS (7)
  1. PHENYTOIN [Suspect]
     Indication: CONVULSION
     Dosage: 400MG DAILY PO CHRONIC
     Route: 048
  2. ENALAPRIL MALEATE [Concomitant]
  3. SYNTHROID [Concomitant]
  4. METOPROLOL TARTRATE [Concomitant]
  5. K-DUR [Concomitant]
  6. ZOLOFT [Concomitant]
  7. SEPTRA [Concomitant]

REACTIONS (4)
  - ASTHENIA [None]
  - BLOOD ALBUMIN DECREASED [None]
  - PRESYNCOPE [None]
  - THERAPEUTIC AGENT TOXICITY [None]
